FAERS Safety Report 13365106 (Version 1)
Quarter: 2017Q1

REPORT INFORMATION
  Report Type: Report from Study
  Country: US (occurrence: US)
  Receive Date: 20170323
  Receipt Date: 20170323
  Transmission Date: 20170429
  Serious: Yes (Other)
  Sender: FDA-Public Use
  Company Number: US-MYLANLABS-2017M1017918

PATIENT

DRUGS (2)
  1. OCTREOTIDE. [Suspect]
     Active Substance: OCTREOTIDE
     Dosage: OFF-LABEL TREATMENT
     Route: 058
  2. OCTREOTIDE. [Suspect]
     Active Substance: OCTREOTIDE
     Indication: HYPERINSULINISM
     Dosage: OFF-LABEL TREATMENT
     Route: 042

REACTIONS (2)
  - Off label use [Unknown]
  - Hypoglycaemic seizure [Unknown]
